FAERS Safety Report 7627840-X (Version None)
Quarter: 2011Q3

REPORT INFORMATION
  Report Type: 
  Country: None (occurrence: None)
  Receive Date: 20110721
  Receipt Date: 20090820
  Transmission Date: 20111222
  Serious: Yes (Other)
  Sender: FDA-Public Use
  Company Number: US-BAYER-200922331NA

PATIENT
  Age: 47 Year
  Sex: Female
  Weight: 49.4 kg

DRUGS (55)
  1. PREDNISONE [Concomitant]
  2. VANCOMYCIN [Concomitant]
  3. NEPHROCAPS [Concomitant]
  4. MEGESTROL ACETATE [Concomitant]
  5. NYSTATIN [Concomitant]
  6. MAGNESIUM OXIDE [Concomitant]
  7. TUMS [CALCIUM CARBONATE] [Concomitant]
  8. EPOGEN [Concomitant]
  9. OMNISCAN [Suspect]
     Indication: NUCLEAR MAGNETIC RESONANCE IMAGING
     Dosage: UNK
     Dates: start: 20020920
  10. OMNISCAN [Suspect]
     Indication: ANGIOGRAM
     Dosage: UNK
     Dates: start: 20060524
  11. NEPHROCAPS [Concomitant]
  12. MULTI-VITAMIN [Concomitant]
  13. MIDODRINE HYDROCHLORIDE [Concomitant]
  14. LEVOTHYROXINE SODIUM [Concomitant]
  15. ARGATROBAN [Concomitant]
  16. FLAGYL [Concomitant]
  17. MYCOSTATIN [Concomitant]
  18. CELLCEPT [Concomitant]
  19. SENSIPAR [Concomitant]
  20. FLORINEF [Concomitant]
  21. ACTIVASE [Concomitant]
  22. PROAMATINE [Concomitant]
  23. PHENERGAN HCL [Concomitant]
  24. MULTIHANCE [Suspect]
     Indication: ANGIOGRAM
     Route: 042
     Dates: start: 20070406, end: 20070406
  25. SYNTHROID [Concomitant]
  26. PAROXETINE HCL [Concomitant]
  27. MERREM [Concomitant]
  28. FRAGMIN [Concomitant]
  29. SEVELAMER [Concomitant]
  30. HYDROCORTISONE [Concomitant]
  31. SUBLIMAZE PRESERVATIVE FREE [Concomitant]
  32. FLUCONAZOLE [Concomitant]
  33. PROCRIT [Concomitant]
  34. EPOETIN ALFA [Concomitant]
  35. PARICALCITOL [Concomitant]
  36. GABAPENTIN [Concomitant]
  37. PANTOPRAZOLE [Concomitant]
  38. ONDANSETRON [Concomitant]
  39. THALIDOMIDE [Concomitant]
  40. DEXAMETHASONE [Concomitant]
  41. VALCYTE [Concomitant]
  42. LACTINEX [Concomitant]
  43. PREVACID [Concomitant]
  44. MAGNEVIST [Suspect]
     Indication: ANGIOGRAM
     Dosage: 20ML FOR MR ANGIOGRAPHY
     Route: 042
     Dates: start: 20020920, end: 20020920
  45. RENAGEL [Concomitant]
  46. PROTONIX [Concomitant]
  47. ALPRAZOLAM [Concomitant]
  48. ANZEMET [Concomitant]
  49. COUMADIN [Concomitant]
  50. VENOFER [Concomitant]
  51. OMNISCAN [Suspect]
     Indication: NUCLEAR MAGNETIC RESONANCE IMAGING ABDOMINAL
     Dates: start: 20060418, end: 20060418
  52. ALTEPLASE [Concomitant]
  53. GANCICLOVIR [Concomitant]
  54. DRONABINOL [Concomitant]
  55. DIFLUCAN [Concomitant]

REACTIONS (23)
  - SKIN HYPERTROPHY [None]
  - MUSCULOSKELETAL STIFFNESS [None]
  - FIBROSIS [None]
  - SKIN TIGHTNESS [None]
  - OCULAR ICTERUS [None]
  - SKIN PLAQUE [None]
  - ERYTHEMA [None]
  - JOINT CONTRACTURE [None]
  - SKIN INDURATION [None]
  - ARTHRALGIA [None]
  - JOINT STIFFNESS [None]
  - DEFORMITY [None]
  - NEPHROGENIC SYSTEMIC FIBROSIS [None]
  - GAIT DISTURBANCE [None]
  - ASTHENIA [None]
  - LIMB DISCOMFORT [None]
  - MUSCULOSKELETAL DISCOMFORT [None]
  - OEDEMA PERIPHERAL [None]
  - SKIN HYPERPIGMENTATION [None]
  - EXFOLIATIVE RASH [None]
  - PAIN OF SKIN [None]
  - GENERAL PHYSICAL HEALTH DETERIORATION [None]
  - JOINT RANGE OF MOTION DECREASED [None]
